FAERS Safety Report 8264402-8 (Version None)
Quarter: 2012Q2

REPORT INFORMATION
  Report Type: 
  Country: None (occurrence: None)
  Receive Date: 20120406
  Receipt Date: 20120330
  Transmission Date: 20120825
  Serious: Yes (Other)
  Sender: FDA-Public Use
  Company Number: PHHY2012JP025516

PATIENT
  Sex: Female
  Weight: 45 kg

DRUGS (7)
  1. CLONAZEPAM [Concomitant]
     Indication: MUSCLE SPASMS
     Route: 048
     Dates: start: 20110128
  2. TEGRETOL [Concomitant]
     Indication: NEURALGIA
     Route: 048
     Dates: start: 20110715
  3. DAIO-KANZO-TO [Concomitant]
     Indication: CONSTIPATION
     Dates: start: 20120119
  4. GILENYA [Suspect]
     Indication: MULTIPLE SCLEROSIS
     Dosage: 0.5 MG, UNK
     Route: 048
     Dates: start: 20120119
  5. AMITRIPTYLINE HCL [Concomitant]
     Indication: NEURALGIA
     Dosage: 30 MG, UNK
     Route: 048
     Dates: start: 20110118
  6. ZOLPIDEM [Concomitant]
     Indication: INSOMNIA
     Route: 048
     Dates: start: 20110118
  7. DEPAS [Concomitant]
     Indication: ANXIETY
     Route: 048
     Dates: start: 20110520

REACTIONS (5)
  - HEPATIC FUNCTION ABNORMAL [None]
  - HEART RATE DECREASED [None]
  - LYMPHOCYTE COUNT DECREASED [None]
  - GAMMA-GLUTAMYLTRANSFERASE INCREASED [None]
  - WHITE BLOOD CELL COUNT DECREASED [None]
